FAERS Safety Report 22334583 (Version 1)
Quarter: 2023Q2

REPORT INFORMATION
  Report Type: Spontaneous
  Country: US (occurrence: None)
  Receive Date: 20230517
  Receipt Date: 20230517
  Transmission Date: 20230721
  Serious: No
  Sender: FDA-Public Use
  Company Number: US-ROCHE-3152453

PATIENT
  Age: 75 Year
  Sex: Female
  Weight: 54.934 kg

DRUGS (5)
  1. ACTEMRA [Suspect]
     Active Substance: TOCILIZUMAB
     Indication: Giant cell arteritis
     Dosage: NO
     Route: 058
     Dates: start: 20200708
  2. ACTEMRA [Suspect]
     Active Substance: TOCILIZUMAB
     Dosage: YES
     Route: 058
  3. NEOMYCIN [Concomitant]
     Active Substance: NEOMYCIN
     Indication: Rash
     Route: 061
     Dates: start: 202207
  4. LATANOPROST [Concomitant]
     Active Substance: LATANOPROST
     Indication: Glaucoma
     Route: 047
  5. RANITIDINE [Concomitant]
     Active Substance: RANITIDINE
     Indication: Glaucoma
     Route: 047

REACTIONS (1)
  - Exfoliative rash [Not Recovered/Not Resolved]

NARRATIVE: CASE EVENT DATE: 20220601
